FAERS Safety Report 12416612 (Version 1)
Quarter: 2016Q2

REPORT INFORMATION
  Report Type: Spontaneous
  Country: JP (occurrence: JP)
  Receive Date: 20160530
  Receipt Date: 20160530
  Transmission Date: 20160815
  Serious: Yes (Other)
  Sender: FDA-Public Use
  Company Number: JP-JNJFOC-20120714922

PATIENT
  Age: 15 Year

DRUGS (2)
  1. RISPERDAL [Concomitant]
     Active Substance: RISPERIDONE
     Route: 048
  2. INVEGA [Suspect]
     Active Substance: PALIPERIDONE
     Indication: PRODUCT USED FOR UNKNOWN INDICATION
     Route: 048

REACTIONS (8)
  - Activities of daily living impaired [Unknown]
  - Disturbance in attention [Unknown]
  - Flat affect [Not Recovered/Not Resolved]
  - Hepatic function abnormal [Unknown]
  - Feeling abnormal [Unknown]
  - Emotional poverty [Unknown]
  - Depressed level of consciousness [Unknown]
  - Headache [Unknown]
